FAERS Safety Report 6368196-2 (Version None)
Quarter: 2009Q3

REPORT INFORMATION
  Report Type: 
  Country: None (occurrence: None)
  Receive Date: 20090922
  Receipt Date: 20090915
  Transmission Date: 20100115
  Serious: Yes (Life-Threatening, Hospitalization)
  Sender: FDA-Public Use
  Company Number: ZA-JNJFOC-20090905256

PATIENT

DRUGS (2)
  1. REVELLEX [Suspect]
     Indication: RHEUMATOID ARTHRITIS
     Route: 042
     Dates: start: 20090310, end: 20090617
  2. SLEEPING PILL NOS [Suspect]
     Indication: DRUG USE FOR UNKNOWN INDICATION

REACTIONS (3)
  - ACCIDENTAL OVERDOSE [None]
  - PNEUMONIA ASPIRATION [None]
  - RESPIRATORY FAILURE [None]
